FAERS Safety Report 5872952-4 (Version None)
Quarter: 2008Q3

REPORT INFORMATION
  Report Type: 
  Country: None (occurrence: None)
  Receive Date: 20080905
  Receipt Date: 20080825
  Transmission Date: 20090109
  Serious: Yes (Hospitalization)
  Sender: FDA-Public Use
  Company Number: IL-PFIZER INC-2008071350

PATIENT
  Age: 12 Year
  Sex: Female

DRUGS (2)
  1. SERTRALINE [Suspect]
  2. METHYLPHENIDATE HCL [Interacting]

REACTIONS (2)
  - CONVULSION [None]
  - DRUG INTERACTION [None]
